FAERS Safety Report 4424681-1 (Version None)
Quarter: 2004Q3

REPORT INFORMATION
  Report Type: 
  Country: None (occurrence: None)
  Receive Date: 20040809
  Receipt Date: 20040624
  Transmission Date: 20050211
  Serious: Yes (Life-Threatening, Hospitalization)
  Sender: FDA-Public Use
  Company Number: M2004-1025

PATIENT
  Age: 61 Year
  Sex: Female

DRUGS (4)
  1. VERAPAMIL [Suspect]
     Dosage: 30X240MG/ONCE
  2. SERTRALINE HYDROCHLORIDE [Concomitant]
  3. DIPHENHYDRAMINE HCL [Concomitant]
  4. TEMAZEPAM [Concomitant]

REACTIONS (8)
  - ANURIA [None]
  - BRADYCARDIA [None]
  - DRUG LEVEL ABOVE THERAPEUTIC [None]
  - HAEMODYNAMIC INSTABILITY [None]
  - HYPOTENSION [None]
  - INTENTIONAL OVERDOSE [None]
  - MYOCLONUS [None]
  - SHOCK [None]
